FAERS Safety Report 19571294 (Version 1)
Quarter: 2021Q3

REPORT INFORMATION
  Report Type: Spontaneous
  Country: CA (occurrence: US)
  Receive Date: 20210716
  Receipt Date: 20210716
  Transmission Date: 20211014
  Serious: No
  Sender: FDA-Public Use
  Company Number: CA-COVIS PHARMA GMBH-AMAG202101080

PATIENT

DRUGS (1)
  1. FERAHEME [Suspect]
     Active Substance: FERUMOXYTOL NON-STOICHIOMETRIC MAGNETITE
     Indication: SCAN WITH CONTRAST

REACTIONS (5)
  - Vomiting [Unknown]
  - Nausea [Unknown]
  - Pruritus [Unknown]
  - Off label use [Unknown]
  - Headache [Unknown]
